FAERS Safety Report 10085957 (Version 1)
Quarter: 2014Q2

REPORT INFORMATION
  Report Type: Spontaneous
  Country: US (occurrence: None)
  Receive Date: 20140414
  Receipt Date: 20140414
  Transmission Date: 20141212
  Serious: Yes (Hospitalization)
  Sender: FDA-Public Use
  Company Number: FR-20140120

PATIENT
  Age: 74 Year
  Sex: Male

DRUGS (5)
  1. DOTAREM (GADOTERIC ACID) [Suspect]
     Dosage: 15 ML (15ML, 1-2) UNK (1GM)
     Dates: start: 20140214
  2. CEFOTAXIME [Suspect]
     Indication: LOCALISED INFECTION
     Route: 042
     Dates: start: 20140211
  3. AUGMENTIN [Concomitant]
  4. CLAVULANATE POTASSIUM [Concomitant]
  5. AMOXICILLIN SODIUM [Concomitant]

REACTIONS (1)
  - Renal failure [None]
